FAERS Safety Report 4935246-7 (Version None)
Quarter: 2006Q1

REPORT INFORMATION
  Report Type: 
  Country: None (occurrence: None)
  Receive Date: 20060302
  Receipt Date: 20060215
  Transmission Date: 20060701
  Serious: Yes (Hospitalization)
  Sender: FDA-Public Use
  Company Number: US-2006-003024

PATIENT
  Age: 41 Year
  Sex: Female

DRUGS (1)
  1. BETASERON [Suspect]
     Indication: MULTIPLE SCLEROSIS
     Dosage: 8 MIU, EVERY 2D, SUBCUTANEOUS
     Route: 058
     Dates: start: 20051013

REACTIONS (11)
  - ABDOMINAL ABSCESS [None]
  - ABDOMINAL PAIN [None]
  - ABSCESS RUPTURE [None]
  - BLADDER REPAIR [None]
  - CHILLS [None]
  - CONDITION AGGRAVATED [None]
  - GENITAL HAEMORRHAGE [None]
  - HAEMORRHAGE [None]
  - INFECTION [None]
  - INFLUENZA LIKE ILLNESS [None]
  - MENORRHAGIA [None]
